FAERS Safety Report 9889317 (Version 3)
Quarter: 2014Q2

REPORT INFORMATION
  Report Type: Spontaneous
  Country: US (occurrence: US)
  Receive Date: 20140211
  Receipt Date: 20140530
  Transmission Date: 20141212
  Serious: No
  Sender: FDA-Public Use
  Company Number: US-TEVA-461880USA

PATIENT
  Age: 37 Year
  Sex: Female
  Weight: 63.56 kg

DRUGS (1)
  1. PARAGARD 380A [Suspect]
     Indication: CONTRACEPTION
     Route: 015
     Dates: start: 20120104, end: 20140130

REACTIONS (4)
  - Device expulsion [Recovered/Resolved]
  - Medical device complication [Unknown]
  - Muscle spasms [Unknown]
  - Menorrhagia [Unknown]
